FAERS Safety Report 5212197-4 (Version None)
Quarter: 2006Q4

REPORT INFORMATION
  Report Type: 
  Country: None (occurrence: None)
  Receive Date: 20061120
  Receipt Date: 20051101
  Transmission Date: 20070319
  Serious: Yes (Hospitalization)
  Sender: FDA-Public Use
  Company Number: US-2005-020878

PATIENT
  Age: 43 Year
  Sex: Male

DRUGS (1)
  1. ULTRAVIST (PHARMACY BULK) [Suspect]
     Indication: COMPUTERISED TOMOGRAM
     Dosage: 200 ML, 1 DOSE, INTRAVENOUS
     Route: 042
     Dates: start: 20051006, end: 20051006

REACTIONS (5)
  - COUGH [None]
  - EYE IRRITATION [None]
  - EYE SWELLING [None]
  - SNEEZING [None]
  - URTICARIA [None]
